FAERS Safety Report 7731628-9 (Version None)
Quarter: 2011Q3

REPORT INFORMATION
  Report Type: 
  Country: None (occurrence: None)
  Receive Date: 20110906
  Receipt Date: 20110613
  Transmission Date: 20111222
  Serious: No
  Sender: FDA-Public Use
  Company Number: US-AMGEN-USASP2011030399

PATIENT
  Age: 68 Year
  Sex: Female

DRUGS (8)
  1. PROGRAF [Concomitant]
  2. ZOLOFT [Concomitant]
  3. PREDNISONE [Concomitant]
  4. VITAMIN B-12 [Concomitant]
  5. PROLIA [Suspect]
     Indication: OSTEOPOROSIS POSTMENOPAUSAL
     Dosage: 60 MG, Q6MO
     Dates: start: 20110101
  6. BACTRIM [Concomitant]
  7. VALIUM [Concomitant]
  8. PERCOCET [Concomitant]

REACTIONS (1)
  - URINARY TRACT INFECTION [None]
